FAERS Safety Report 13699059 (Version 1)
Quarter: 2017Q2

REPORT INFORMATION
  Report Type: Spontaneous
  Country: BR (occurrence: BR)
  Receive Date: 20170628
  Receipt Date: 20170628
  Transmission Date: 20170830
  Serious: Yes (Other)
  Sender: FDA-Public Use
  Company Number: BR-PFIZER INC-2017278802

PATIENT
  Age: 14 Year
  Sex: Female

DRUGS (4)
  1. EFFEXOR XR [Suspect]
     Active Substance: VENLAFAXINE HYDROCHLORIDE
     Dosage: 2 TABLETS OF 37.5MG A DAY
  2. EFFEXOR XR [Suspect]
     Active Substance: VENLAFAXINE HYDROCHLORIDE
     Dosage: 3 TABLETS OF 37.5MG A DAY
     Dates: start: 20170624, end: 20170625
  3. EFFEXOR XR [Suspect]
     Active Substance: VENLAFAXINE HYDROCHLORIDE
     Dosage: TOOK ONLY 2 TABLETS
     Dates: start: 20170626, end: 20170626
  4. EFFEXOR XR [Suspect]
     Active Substance: VENLAFAXINE HYDROCHLORIDE
     Dosage: 37.5 MG (1 TABLET), DAILY

REACTIONS (3)
  - Anxiety [Unknown]
  - Product use issue [Unknown]
  - Self-injurious ideation [Unknown]
